FAERS Safety Report 7201583-9 (Version None)
Quarter: 2010Q4

REPORT INFORMATION
  Report Type: 
  Country: None (occurrence: None)
  Receive Date: 20101214
  Receipt Date: 20101130
  Transmission Date: 20110411
  Serious: Yes (Hospitalization)
  Sender: FDA-Public Use
  Company Number: 2010P1002684

PATIENT
  Age: 85 Year
  Sex: Female
  Weight: 77.1115 kg

DRUGS (11)
  1. FENTANYL-25 [Suspect]
     Indication: NECK PAIN
     Dosage: 25 MCG/HR;Q72H;TDER
     Route: 062
     Dates: start: 20080101, end: 20101125
  2. DILTIAZEM HCL CD [Concomitant]
  3. VITAMIN E [Concomitant]
  4. VITAMIN D [Concomitant]
  5. VITAMIN B-12 [Concomitant]
  6. VITAMIN A [Concomitant]
  7. ASCORBIC ACID [Concomitant]
  8. FISH OIL [Concomitant]
  9. CALCIUM [Concomitant]
  10. MAGNESIUM [Concomitant]
  11. PREV MEDS [Concomitant]

REACTIONS (11)
  - ASTHENIA [None]
  - ASTHMA [None]
  - CONDITION AGGRAVATED [None]
  - DIZZINESS [None]
  - EUPHORIC MOOD [None]
  - FEELING ABNORMAL [None]
  - FEELING JITTERY [None]
  - MALAISE [None]
  - NAUSEA [None]
  - PRODUCT QUALITY ISSUE [None]
  - SWELLING [None]
